FAERS Safety Report 20890702 (Version 1)
Quarter: 2022Q2

REPORT INFORMATION
  Report Type: Spontaneous
  Country: US (occurrence: US)
  Receive Date: 20220530
  Receipt Date: 20220530
  Transmission Date: 20220721
  Serious: Yes (Death, Hospitalization, Other)
  Sender: FDA-Public Use
  Company Number: US-BRISTOL-MYERS SQUIBB COMPANY-2022-042946

PATIENT
  Age: 78 Year
  Sex: Female

DRUGS (1)
  1. POMALYST [Suspect]
     Active Substance: POMALIDOMIDE
     Indication: Plasma cell myeloma
     Route: 048
     Dates: start: 20211116, end: 20220108

REACTIONS (4)
  - Malignant neoplasm progression [Unknown]
  - Hypoglycaemia [Unknown]
  - Delirium [Unknown]
  - Death [Fatal]

NARRATIVE: CASE EVENT DATE: 20220108
